FAERS Safety Report 9851573 (Version 1)
Quarter: 2014Q1

REPORT INFORMATION
  Report Type: Spontaneous
  Country: US (occurrence: US)
  Receive Date: 20140129
  Receipt Date: 20140129
  Transmission Date: 20141002
  Serious: No
  Sender: FDA-Public Use
  Company Number: US-BIOGENIDEC-2014BI006862

PATIENT
  Sex: Female

DRUGS (11)
  1. TECFIDERA [Suspect]
     Indication: MULTIPLE SCLEROSIS
     Route: 048
  2. ALENDRONATE SODIUM [Concomitant]
  3. ASPIRIN EC [Concomitant]
  4. DOCUSATE SODIUM [Concomitant]
  5. FENOFIBRATE [Concomitant]
  6. FOLIC ACID [Concomitant]
  7. KLOR-CON M20 [Concomitant]
  8. LISINOPRIL [Concomitant]
  9. SYNTHROID [Concomitant]
  10. VITAMIN D3 [Concomitant]
  11. BACLOFEN [Concomitant]

REACTIONS (2)
  - Accidental overdose [Unknown]
  - Confusional state [Unknown]
